FAERS Safety Report 8822749 (Version 2)
Quarter: 2012Q4

REPORT INFORMATION
  Report Type: 
  Country: FR (occurrence: FR)
  Receive Date: 20121003
  Receipt Date: 20121102
  Transmission Date: 20130627
  Serious: Yes (Other)
  Sender: FDA-Public Use
  Company Number: FR-ALLERGAN-1213108US

PATIENT
  Age: 37 Year
  Sex: Female
  Weight: 55 kg

DRUGS (6)
  1. VISTABEL [Suspect]
     Indication: WRINKLES
     Dosage: 55 UNITS, single
     Route: 030
     Dates: start: 20110901, end: 20110901
  2. VISTABEL [Suspect]
     Dosage: UNK UNK, single
     Route: 030
     Dates: start: 20120326, end: 20120326
  3. VISTABEL [Suspect]
  4. VISTABEL [Suspect]
     Dosage: UNK
     Dates: start: 20110214, end: 20110214
  5. VISTABEL [Suspect]
     Dosage: UNK
     Dates: start: 20100609, end: 20100609
  6. VISTABEL [Suspect]
     Dosage: UNK
     Dates: start: 20091109, end: 20091109

REACTIONS (3)
  - Face oedema [Recovered/Resolved with Sequelae]
  - Corneal irritation [Recovered/Resolved with Sequelae]
  - Hypersensitivity [Unknown]
